FAERS Safety Report 11886148 (Version 11)
Quarter: 2017Q4

REPORT INFORMATION
  Report Type: Spontaneous
  Country: US (occurrence: US)
  Receive Date: 20160104
  Receipt Date: 20171018
  Transmission Date: 20180320
  Serious: Yes (Other)
  Sender: FDA-Public Use
  Company Number: US-PFIZER INC-2015456979

PATIENT
  Age: 54 Year
  Sex: Female
  Weight: 47.17 kg

DRUGS (8)
  1. SOMA [Concomitant]
     Active Substance: CARISOPRODOL
     Dosage: UNK
  2. LYRICA [Suspect]
     Active Substance: PREGABALIN
     Dosage: 225 MG, UNK
     Route: 048
  3. LYRICA [Suspect]
     Active Substance: PREGABALIN
     Dosage: 200 MG, 2X/DAY
     Route: 048
  4. LYRICA [Suspect]
     Active Substance: PREGABALIN
     Dosage: 75 MG, UNK
     Route: 048
  5. OXYCODONE [Concomitant]
     Active Substance: OXYCODONE
     Dosage: UNK
  6. LYRICA [Suspect]
     Active Substance: PREGABALIN
     Indication: FIBROMYALGIA
     Dosage: 100 MG, 3X/DAY
     Route: 048
  7. NORCO [Concomitant]
     Active Substance: ACETAMINOPHEN\HYDROCODONE BITARTRATE
     Dosage: UNK
  8. LYRICA [Suspect]
     Active Substance: PREGABALIN
     Dosage: 100 MG, 4X/DAY
     Route: 048

REACTIONS (14)
  - Pain [Unknown]
  - Fall [Unknown]
  - Limb discomfort [Unknown]
  - Apnoea [Unknown]
  - Upper limb fracture [Unknown]
  - Oxygen saturation decreased [Unknown]
  - Malaise [Recovered/Resolved]
  - Insomnia [Unknown]
  - Crying [Unknown]
  - Withdrawal syndrome [Unknown]
  - Deafness [Recovering/Resolving]
  - Nausea [Unknown]
  - Drug prescribing error [Unknown]
  - Screaming [Unknown]

NARRATIVE: CASE EVENT DATE: 20170102
